FAERS Safety Report 6039441-8 (Version None)
Quarter: 2009Q1

REPORT INFORMATION
  Report Type: 
  Country: None (occurrence: None)
  Receive Date: 20090114
  Receipt Date: 20090107
  Transmission Date: 20090719
  Serious: Yes (Hospitalization)
  Sender: FDA-Public Use
  Company Number: 2008SP024230

PATIENT
  Age: 90 Year
  Sex: Female

DRUGS (4)
  1. BETAMETHASONE SODIUM PHOSPHATE [Suspect]
     Indication: RESPIRATORY TRACT CONGESTION
     Dosage: 1 DF; ONCE; IV
     Route: 042
     Dates: start: 20081016, end: 20081016
  2. PREVISCAN (FLUINDIONE) [Suspect]
     Indication: DRUG USE FOR UNKNOWN INDICATION
     Dosage: 0.25 DF; QD; PO
     Route: 048
     Dates: end: 20081016
  3. ACETAMINOPHEN [Suspect]
     Indication: DRUG USE FOR UNKNOWN INDICATION
     Dosage: 600 MG; ONCE; RTL
     Route: 054
     Dates: start: 20081016, end: 20081016
  4. LASIX [Suspect]
     Indication: DRUG USE FOR UNKNOWN INDICATION
     Dosage: 1 DF; ONCE; IV
     Route: 042
     Dates: start: 20081016, end: 20081016

REACTIONS (6)
  - BRAIN OEDEMA [None]
  - FALL [None]
  - INTERNATIONAL NORMALISED RATIO INCREASED [None]
  - PARALYSIS [None]
  - SUBARACHNOID HAEMORRHAGE [None]
  - SUBDURAL HAEMATOMA [None]
